FAERS Safety Report 6159619-2 (Version None)
Quarter: 2009Q2

REPORT INFORMATION
  Report Type: 
  Country: None (occurrence: None)
  Receive Date: 20090415
  Receipt Date: 20090415
  Transmission Date: 20091009
  Serious: Yes (Hospitalization)
  Sender: FDA-Public Use
  Company Number: None

PATIENT
  Sex: Female
  Weight: 98.4 kg

DRUGS (4)
  1. CISPLATIN [Suspect]
     Dosage: 196 MG
     Dates: end: 20090327
  2. AMLODIPINE BESYLATE [Concomitant]
  3. FENTANYL TRANSDERMAL SYSTEM [Concomitant]
  4. POTASSIUM CHLORIDE [Concomitant]

REACTIONS (3)
  - FEBRILE NEUTROPENIA [None]
  - NECK PAIN [None]
  - OROPHARYNGEAL PAIN [None]
